FAERS Safety Report 25364390 (Version 1)
Quarter: 2025Q2

REPORT INFORMATION
  Report Type: Spontaneous
  Country: US (occurrence: None)
  Receive Date: 20250524
  Receipt Date: 20250524
  Transmission Date: 20250716
  Serious: Yes (Hospitalization)
  Sender: FDA-CTU
  Company Number: None

PATIENT
  Sex: Female

DRUGS (1)
  1. TEMOZOLOMIDE [Suspect]
     Active Substance: TEMOZOLOMIDE
     Indication: Brain neoplasm malignant
     Dosage: 250 MG DAILY ORAL?
     Route: 048
     Dates: start: 20250429

REACTIONS (4)
  - Blood pressure decreased [None]
  - Decreased appetite [None]
  - Fatigue [None]
  - Diplopia [None]
